FAERS Safety Report 5064326-3 (Version None)
Quarter: 2006Q3

REPORT INFORMATION
  Report Type: 
  Country: None (occurrence: None)
  Receive Date: 20060728
  Receipt Date: 20060718
  Transmission Date: 20061208
  Serious: Yes (Life-Threatening, Other)
  Sender: FDA-Public Use
  Company Number: CA-JNJFOC-20060703532

PATIENT
  Sex: Male
  Weight: 70.5 kg

DRUGS (7)
  1. REMICADE [Suspect]
     Indication: RHEUMATOID ARTHRITIS
     Route: 042
  2. NICODERM [Concomitant]
     Route: 062
  3. NICODERM [Concomitant]
     Route: 062
  4. APO-FOLIC [Concomitant]
     Route: 048
  5. METHOTREXATE [Concomitant]
     Route: 048
  6. SERC [Concomitant]
     Indication: DIZZINESS
     Route: 048
  7. SERC [Concomitant]
     Indication: VERTIGO
     Dosage: 2-3 TIMES/DAY
     Route: 048

REACTIONS (1)
  - HODGKIN'S DISEASE [None]
